FAERS Safety Report 5512932-1 (Version None)
Quarter: 2007Q4

REPORT INFORMATION
  Report Type: 
  Country: None (occurrence: None)
  Receive Date: 20071112
  Receipt Date: 20071029
  Transmission Date: 20080405
  Serious: Yes (Other)
  Sender: FDA-Public Use
  Company Number: FR-BRISTOL-MYERS SQUIBB COMPANY-13904701

PATIENT
  Age: 34 Year
  Sex: Female

DRUGS (2)
  1. GLUCOPHAGE [Suspect]
     Indication: DIABETES MELLITUS
     Route: 048
     Dates: end: 20070901
  2. DIAMICRON [Suspect]
     Indication: DIABETES MELLITUS
     Route: 048
     Dates: end: 20070901

REACTIONS (2)
  - INTRA-UTERINE DEATH [None]
  - PREGNANCY [None]
